FAERS Safety Report 25036118 (Version 1)
Quarter: 2025Q1

REPORT INFORMATION
  Report Type: Spontaneous
  Country: US (occurrence: None)
  Receive Date: 20250303
  Receipt Date: 20250303
  Transmission Date: 20250409
  Serious: Yes (Disabling)
  Sender: FDA-CTU
  Company Number: None

PATIENT
  Age: 44 Year
  Sex: Female
  Weight: 60 kg

DRUGS (1)
  1. BONEFOS [Suspect]
     Active Substance: CLODRONATE DISODIUM
     Dates: start: 20241215, end: 20241216

REACTIONS (2)
  - Product quality issue [None]
  - Adverse drug reaction [None]

NARRATIVE: CASE EVENT DATE: 20241215
